FAERS Safety Report 19129210 (Version 4)
Quarter: 2021Q4

REPORT INFORMATION
  Report Type: Report from Study
  Country: PL (occurrence: PL)
  Receive Date: 20210413
  Receipt Date: 20211215
  Transmission Date: 20220303
  Serious: No
  Sender: FDA-Public Use
  Company Number: PL-KARYOPHARM-2021KPT000228

PATIENT
  Age: 57 Year
  Sex: Female

DRUGS (6)
  1. SELINEXOR [Suspect]
     Active Substance: SELINEXOR
     Indication: Plasma cell myeloma
     Dosage: 100 MG, WEEKLY
     Route: 048
     Dates: start: 20201216
  2. SELINEXOR [Suspect]
     Active Substance: SELINEXOR
     Dosage: 40 MG
     Route: 048
  3. SELINEXOR [Suspect]
     Active Substance: SELINEXOR
     Dosage: UNK
     Route: 048
     Dates: start: 20210625, end: 20211008
  4. SELINEXOR [Suspect]
     Active Substance: SELINEXOR
     Dosage: UNK
     Dates: end: 20211015
  5. VELCADE [Concomitant]
     Active Substance: BORTEZOMIB
     Indication: Plasma cell myeloma
     Dosage: 1.3 MG/M2, WEEKLY
     Dates: start: 20201216
  6. DEXAMETHASONE [Concomitant]
     Active Substance: DEXAMETHASONE
     Indication: Plasma cell myeloma
     Dosage: UNK
     Dates: start: 20201216

REACTIONS (4)
  - Neutropenia [Recovered/Resolved]
  - Thrombocytopenia [Not Recovered/Not Resolved]
  - Plasma cell myeloma [Not Recovered/Not Resolved]
  - Anaemia [Not Recovered/Not Resolved]

NARRATIVE: CASE EVENT DATE: 20210120
